FAERS Safety Report 10991979 (Version 2)
Quarter: 2015Q2

REPORT INFORMATION
  Report Type: Report from Study
  Country: US (occurrence: US)
  Receive Date: 20150406
  Receipt Date: 20150527
  Transmission Date: 20150821
  Serious: Yes (Other)
  Sender: FDA-Public Use
  Company Number: US-GILEAD-2015-0147146

PATIENT
  Age: 47 Year
  Sex: Male
  Weight: 78.9 kg

DRUGS (2)
  1. REMODULIN [Suspect]
     Active Substance: TREPROSTINIL
     Indication: PULMONARY ARTERIAL HYPERTENSION
     Dosage: 0.012 UG/KG/MIN, UNK
     Route: 058
     Dates: start: 20150409
  2. AMBRISENTAN [Suspect]
     Active Substance: AMBRISENTAN
     Indication: PRODUCT USED FOR UNKNOWN INDICATION
     Dosage: 10 MG, QD
     Route: 048
     Dates: start: 20150331

REACTIONS (15)
  - Cholecystostomy [Unknown]
  - Infusion site pain [Unknown]
  - Anxiety [Unknown]
  - Coronary artery disease [Unknown]
  - Hyperlipidaemia [Unknown]
  - Drug abuse [Unknown]
  - Depression [Unknown]
  - Rheumatoid arthritis [Unknown]
  - Infusion site erythema [Unknown]
  - Headache [Unknown]
  - Emphysema [Unknown]
  - Hypertension [Unknown]
  - Gastrooesophageal reflux disease [Unknown]
  - Cholecystitis acute [Unknown]
  - Vomiting [Unknown]
